FAERS Safety Report 17184635 (Version 1)
Quarter: 2019Q4

REPORT INFORMATION
  Report Type: Other
  Country: FR (occurrence: FR)
  Receive Date: 20191220
  Receipt Date: 20191220
  Transmission Date: 20200122
  Serious: Yes (Other)
  Sender: FDA-Public Use
  Company Number: FR-ASPEN-GLO2019FR013406

PATIENT
  Sex: Male

DRUGS (18)
  1. CYCLOPHOSPHAMIDE. [Suspect]
     Active Substance: CYCLOPHOSPHAMIDE
     Indication: BONE MARROW CONDITIONING REGIMEN
     Dosage: 50 MG/KG, 4 DOSE DAILY
     Route: 065
  2. ARACYTINE [Suspect]
     Active Substance: CYTARABINE
     Indication: CHEMOTHERAPY
     Dosage: 2 G/M2, QD (1/DAY) FROM D2 TO D6
  3. ARACYTINE [Suspect]
     Active Substance: CYTARABINE
     Dosage: 3 G/M2, BID (2/DAY) AT D1, D2, D8, D9
     Route: 065
  4. NOVANTRONE [Suspect]
     Active Substance: MITOXANTRONE HYDROCHLORIDE
     Indication: CHEMOTHERAPY
     Dosage: 10 MG/M2, QD (1/DAY)
     Route: 065
  5. DAUNORUBICIN [Suspect]
     Active Substance: DAUNORUBICIN
     Indication: CHEMOTHERAPY
     Dosage: 40 MG/M2, QD (1/DAY)
     Route: 065
  6. ARACYTINE [Suspect]
     Active Substance: CYTARABINE
     Dosage: 200 MG/M2, QD (1/DAY)
     Route: 065
  7. BUSULFAN. [Suspect]
     Active Substance: BUSULFAN
     Indication: BONE MARROW CONDITIONING REGIMEN
     Dosage: 1.2 MG/KG, 4 DOSE DAILY
     Route: 065
  8. AMSACRINE [Suspect]
     Active Substance: AMSACRINE
     Indication: CHEMOTHERAPY
     Dosage: 100 MG/M2, BID (2/DAY)
  9. FLUDARABINE [Suspect]
     Active Substance: FLUDARABINE PHOSPHATE
     Indication: CHEMOTHERAPY
     Dosage: 30 MG/M2, QD (1/DAY) D2 TO D6
     Route: 065
  10. CYCLOSPORINE. [Suspect]
     Active Substance: CYCLOSPORINE
     Indication: PROPHYLAXIS AGAINST GRAFT VERSUS HOST DISEASE
     Route: 065
  11. THYMOGLOBULIN [Suspect]
     Active Substance: LAPINE T-LYMPHOCYTE IMMUNE GLOBULIN
     Indication: PROPHYLAXIS AGAINST GRAFT VERSUS HOST DISEASE
     Dosage: UNK
     Route: 065
  12. ARACYTINE [Suspect]
     Active Substance: CYTARABINE
     Dosage: 3 G/M2, BID (2/DAY)
     Route: 065
  13. IDARUBICIN [Suspect]
     Active Substance: IDARUBICIN
     Indication: CHEMOTHERAPY
     Dosage: 8 MG/M2, QD (1/DAY), D2, D4, J6
     Route: 065
  14. G-CSF [Suspect]
     Active Substance: GRANULOCYTE COLONY-STIMULATING FACTOR NOS
     Indication: CHEMOTHERAPY
     Dosage: FROM D1 TO D6
     Route: 065
  15. METHOTREXATE. [Suspect]
     Active Substance: METHOTREXATE
     Indication: PROPHYLAXIS AGAINST GRAFT VERSUS HOST DISEASE
     Dosage: UNK
     Route: 065
  16. ARACYTINE [Suspect]
     Active Substance: CYTARABINE
     Dosage: 200 MG/M2, QD (1/DAY)
     Route: 065
  17. ETOPOSIDE. [Suspect]
     Active Substance: ETOPOSIDE
     Indication: CHEMOTHERAPY
     Dosage: 100 MG/M2, QD (1/DAY)
     Route: 065
  18. L ASPARAGINASE [Suspect]
     Active Substance: ASPARAGINASE
     Indication: CHEMOTHERAPY
     Dosage: 6000 U/M2/DAY D2, D9
     Route: 065

REACTIONS (7)
  - Acute graft versus host disease in skin [Unknown]
  - Mucormycosis [Unknown]
  - Enamel anomaly [Unknown]
  - Chronic graft versus host disease [Unknown]
  - Acute graft versus host disease in intestine [Unknown]
  - Bronchopulmonary aspergillosis [Unknown]
  - Tooth disorder [Unknown]
